FAERS Safety Report 23978727 (Version 2)
Quarter: 2024Q3

REPORT INFORMATION
  Report Type: Report from Study
  Country: CO (occurrence: CO)
  Receive Date: 20240614
  Receipt Date: 20240722
  Transmission Date: 20241016
  Serious: Yes (Other)
  Sender: ABBVIE
  Company Number: CO-ABBVIE-5801122

PATIENT
  Sex: Female
  Weight: 60 kg

DRUGS (2)
  1. SKYRIZI [Suspect]
     Active Substance: RISANKIZUMAB-RZAA
     Indication: Psoriasis
     Dosage: FORM STRENGTH: 150 MILLIGRAM
     Route: 058
     Dates: start: 20210723, end: 20240305
  2. ACETAMINOPHEN [Concomitant]
     Active Substance: ACETAMINOPHEN
     Indication: General symptom
     Route: 048
     Dates: start: 202405, end: 20240611

REACTIONS (9)
  - Umbilical hernia [Not Recovered/Not Resolved]
  - Peripheral venous disease [Not Recovered/Not Resolved]
  - Therapy cessation [Unknown]
  - Influenza [Recovered/Resolved with Sequelae]
  - Haematuria [Recovered/Resolved]
  - Pain in extremity [Not Recovered/Not Resolved]
  - Uterine leiomyoma calcification [Not Recovered/Not Resolved]
  - Haematuria [Not Recovered/Not Resolved]
  - Chromaturia [Not Recovered/Not Resolved]

NARRATIVE: CASE EVENT DATE: 20210101
